FAERS Safety Report 6220457-3 (Version None)
Quarter: 2009Q2

REPORT INFORMATION
  Report Type: 
  Country: None (occurrence: None)
  Receive Date: 20090610
  Receipt Date: 20090513
  Transmission Date: 20091009
  Serious: Yes (Life-Threatening, Other)
  Sender: FDA-Public Use
  Company Number: TR-JNJFOC-20090503610

PATIENT
  Age: 65 Year
  Sex: Male

DRUGS (3)
  1. DURAGESIC-100 [Suspect]
     Route: 062
  2. DURAGESIC-100 [Suspect]
     Indication: ANALGESIA
     Route: 062
  3. TRAMADOL HCL [Suspect]
     Indication: PAIN
     Route: 065

REACTIONS (5)
  - AGITATION [None]
  - CONFUSIONAL STATE [None]
  - DYSPEPSIA [None]
  - OVERDOSE [None]
  - RESPIRATORY DEPRESSION [None]
